FAERS Safety Report 23703634 (Version 1)
Quarter: 2024Q2

REPORT INFORMATION
  Report Type: Spontaneous
  Country: CN (occurrence: CN)
  Receive Date: 20240403
  Receipt Date: 20240403
  Transmission Date: 20240716
  Serious: Yes (Hospitalization, Disabling, Other)
  Sender: FDA-Public Use
  Company Number: CN-009507513-2404CHN000404

PATIENT
  Age: 73 Year
  Sex: Male
  Weight: 81.4 kg

DRUGS (2)
  1. KEYTRUDA [Suspect]
     Active Substance: PEMBROLIZUMAB
     Indication: Renal cancer
     Dosage: 200MG, ONCE (ALSO REPORTED AS 11 TIMES A DAY)
     Route: 041
     Dates: start: 20240206, end: 20240206
  2. SODIUM CHLORIDE [Concomitant]
     Active Substance: SODIUM CHLORIDE
     Indication: Medication dilution
     Dosage: 100 ML, ONCE
     Route: 041
     Dates: start: 20240206, end: 20240206

REACTIONS (7)
  - Secondary adrenocortical insufficiency [Recovering/Resolving]
  - Proteinuria [Recovering/Resolving]
  - Oedema peripheral [Recovering/Resolving]
  - Oedema genital [Recovering/Resolving]
  - Nephropathy toxic [Unknown]
  - Immune-mediated nephritis [Unknown]
  - Chest discomfort [Recovering/Resolving]

NARRATIVE: CASE EVENT DATE: 20240101
